FAERS Safety Report 6994094-7 (Version None)
Quarter: 2010Q3

REPORT INFORMATION
  Report Type: 
  Country: None (occurrence: None)
  Receive Date: 20100917
  Receipt Date: 20100113
  Transmission Date: 20110219
  Serious: Yes (Hospitalization, Other)
  Sender: FDA-Public Use
  Company Number: US-ASTRAZENECA-2010SE31420

PATIENT
  Age: 10065 Day
  Sex: Male
  Weight: 123.4 kg

DRUGS (7)
  1. SEROQUEL [Suspect]
     Route: 048
     Dates: start: 20030617
  2. RISPERDAL [Concomitant]
     Dates: start: 20041019
  3. DEPAKOTE [Concomitant]
     Dates: start: 20040921
  4. FLUOXETINE [Concomitant]
     Dates: start: 20040921
  5. LEVOXYL [Concomitant]
     Dates: start: 20041019
  6. NEXIUM [Concomitant]
  7. PRAVACHOL [Concomitant]

REACTIONS (9)
  - ANAEMIA [None]
  - DIABETES MELLITUS [None]
  - DIABETIC COMA [None]
  - DIABETIC KETOACIDOSIS [None]
  - GASTROOESOPHAGEAL REFLUX DISEASE [None]
  - HYPERTENSION [None]
  - HYPOTHYROIDISM [None]
  - OBESITY [None]
  - TYPE 1 DIABETES MELLITUS [None]
